FAERS Safety Report 20061727 (Version 1)
Quarter: 2021Q4

REPORT INFORMATION
  Report Type: Spontaneous
  Country: FR (occurrence: FR)
  Receive Date: 20211112
  Receipt Date: 20211112
  Transmission Date: 20220303
  Serious: Yes (Congenital Anomaly, Other)
  Sender: FDA-Public Use
  Company Number: None

PATIENT

DRUGS (4)
  1. STRIBILD [Suspect]
     Active Substance: COBICISTAT\ELVITEGRAVIR\EMTRICITABINE\TENOFOVIR DISOPROXIL FUMARATE
     Indication: HIV infection
     Dosage: 150MG/150MG/200MG/245MG, QD
     Route: 064
     Dates: start: 20210102, end: 20210201
  2. TRUVADA [Concomitant]
     Active Substance: EMTRICITABINE\TENOFOVIR DISOPROXIL FUMARATE
     Indication: HIV infection
     Dosage: 200MG/245MG, QD
     Route: 064
     Dates: start: 20210201
  3. PREZISTA [Concomitant]
     Active Substance: DARUNAVIR ETHANOLATE
     Route: 048
     Dates: start: 20210201, end: 20210316
  4. NORVIR [Concomitant]
     Active Substance: RITONAVIR
     Route: 048
     Dates: start: 20210201

REACTIONS (3)
  - Congenital renal cyst [Unknown]
  - Foetal renal imaging abnormal [Unknown]
  - Foetal exposure during pregnancy [Unknown]

NARRATIVE: CASE EVENT DATE: 20210101
